FAERS Safety Report 9661114 (Version 1)
Quarter: 2013Q4

REPORT INFORMATION
  Report Type: Spontaneous
  Country: US (occurrence: US)
  Receive Date: 20131031
  Receipt Date: 20131031
  Transmission Date: 20140711
  Serious: Yes (Hospitalization, Other)
  Sender: FDA-Public Use
  Company Number: US-ABBVIE-13P-163-1163478-00

PATIENT
  Age: 52 Year
  Sex: Male
  Weight: 59.02 kg

DRUGS (5)
  1. HUMIRA [Suspect]
     Indication: CROHN^S DISEASE
     Dates: start: 2010, end: 201302
  2. VITAMIN D [Concomitant]
     Indication: VITAMIN D DEFICIENCY
  3. VENOFER [Concomitant]
     Indication: ANAEMIA
  4. IMODIUM [Concomitant]
     Indication: DIARRHOEA
  5. CHOLESTYRAMINE [Concomitant]
     Indication: DIARRHOEA

REACTIONS (5)
  - Weight decreased [Not Recovered/Not Resolved]
  - Nephrolithiasis [Recovered/Resolved]
  - Nephrolithiasis [Recovered/Resolved]
  - Device related infection [Recovered/Resolved]
  - Abdominal pain [Not Recovered/Not Resolved]
